FAERS Safety Report 9315649 (Version 2)
Quarter: 2013Q2

REPORT INFORMATION
  Report Type: Spontaneous
  Country: FR (occurrence: FR)
  Receive Date: 20130529
  Receipt Date: 20130621
  Transmission Date: 20140414
  Serious: Yes (Hospitalization)
  Sender: FDA-Public Use
  Company Number: FR-VERTEX PHARMACEUTICALS INC-2013-006538

PATIENT
  Age: 57 Year
  Sex: Male
  Weight: 104 kg

DRUGS (7)
  1. INCIVO [Suspect]
     Indication: HEPATITIS C
     Dosage: 2-2-2
     Route: 048
     Dates: start: 20130318
  2. INCIVO [Suspect]
     Indication: HEPATITIS VIRAL
  3. PEGASYS [Suspect]
     Indication: HEPATITIS VIRAL
     Route: 058
     Dates: start: 20130318
  4. COPEGUS [Suspect]
     Indication: HEPATITIS VIRAL
     Dosage: UNK, QD
     Route: 048
     Dates: start: 20130318
  5. ATARAX [Concomitant]
     Indication: PRURITUS
     Route: 048
     Dates: start: 20130402
  6. ZYRTEC [Concomitant]
     Indication: PRURITUS
     Dates: start: 20130402
  7. IMOVANE [Concomitant]
     Dates: start: 20130420

REACTIONS (6)
  - Retinitis [Unknown]
  - Staphylococcal sepsis [Recovered/Resolved]
  - Neutropenia [Unknown]
  - Visual acuity reduced [Unknown]
  - Pruritus [Unknown]
  - Rash generalised [Unknown]
